FAERS Safety Report 15291382 (Version 1)
Quarter: 2018Q3

REPORT INFORMATION
  Report Type: Spontaneous
  Country: HR (occurrence: HR)
  Receive Date: 20180817
  Receipt Date: 20180817
  Transmission Date: 20181010
  Serious: Yes (Hospitalization)
  Sender: FDA-Public Use
  Company Number: HR-TEVA-2018-HR-942827

PATIENT
  Age: 52 Year
  Sex: Female
  Weight: 70 kg

DRUGS (1)
  1. KLAVOCIN BID TABLETE 1 G [Suspect]
     Active Substance: AMOXICILLIN\CLAVULANIC ACID
     Indication: CYSTITIS
     Dosage: 2 DOSAGE FORMS DAILY; 1 G; 2X1
     Route: 048
     Dates: start: 20180712

REACTIONS (4)
  - Dyspnoea [Recovering/Resolving]
  - Erythema [Recovering/Resolving]
  - Respiration abnormal [Recovering/Resolving]
  - Rash [Recovering/Resolving]

NARRATIVE: CASE EVENT DATE: 20180713
